FAERS Safety Report 7717996-2 (Version None)
Quarter: 2011Q3

REPORT INFORMATION
  Report Type: 
  Country: None (occurrence: None)
  Receive Date: 20110830
  Receipt Date: 20110824
  Transmission Date: 20111222
  Serious: Yes (Other)
  Sender: FDA-Public Use
  Company Number: CH-PFIZER INC-2011196275

PATIENT
  Age: 37 Year
  Sex: Female

DRUGS (6)
  1. XANAX [Suspect]
     Dosage: 0.125 MG, 1X/DAY
     Dates: end: 20110223
  2. BEROCCA CALCIUM, MAGNESIUM + ZINC [Concomitant]
     Dosage: UNK
     Dates: end: 20110412
  3. LEVOTHYROXINE SODIUM [Concomitant]
     Indication: HYPOTHYROIDISM
     Dosage: 0.1 MG, 1X/DAY
     Dates: end: 20110412
  4. DEANXIT [Suspect]
     Dosage: 10 MG, 1X/DAY
  5. ZOLPIDEM [Suspect]
     Dosage: 40 MG, 1X/DAY
  6. REQUIP [Suspect]
     Indication: RESTLESS LEGS SYNDROME
     Dosage: 1 TABLET, 1X/DAY
     Dates: end: 20110223

REACTIONS (1)
  - ABORTION MISSED [None]
